FAERS Safety Report 6396207-7 (Version None)
Quarter: 2009Q4

REPORT INFORMATION
  Report Type: 
  Country: None (occurrence: None)
  Receive Date: 20091011
  Receipt Date: 20090929
  Transmission Date: 20100525
  Serious: Yes (Other)
  Sender: FDA-Public Use
  Company Number: PHHY2009GB42151

PATIENT

DRUGS (1)
  1. NEORAL [Suspect]
     Indication: SKIN DISORDER
     Dosage: 50 MG PER DAY

REACTIONS (2)
  - APHAGIA [None]
  - SURGERY [None]
